FAERS Safety Report 4782497-0 (Version None)
Quarter: 2005Q3

REPORT INFORMATION
  Report Type: 
  Country: None (occurrence: None)
  Receive Date: 20050929
  Receipt Date: 20050110
  Transmission Date: 20060218
  Serious: No
  Sender: FDA-Public Use
  Company Number: 396007

PATIENT
  Sex: Male

DRUGS (2)
  1. COREG [Suspect]
     Dosage: 3.25MG TWICE PER DAY
     Route: 048
  2. DIURETIC [Concomitant]
     Route: 065

REACTIONS (2)
  - DYSPNOEA [None]
  - FEELING ABNORMAL [None]
